FAERS Safety Report 15291239 (Version 2)
Quarter: 2018Q3

REPORT INFORMATION
  Report Type: Report from Study
  Country: US (occurrence: US)
  Receive Date: 20180817
  Receipt Date: 20180913
  Transmission Date: 20181010
  Serious: Yes (Hospitalization, Other)
  Sender: FDA-Public Use
  Company Number: US-TESARO, INC-US-2018TSO03685

PATIENT
  Sex: Female

DRUGS (2)
  1. ZEJULA [Suspect]
     Active Substance: NIRAPARIB
     Indication: OVARIAN CANCER
     Dosage: 300 MG, QD
     Route: 048
     Dates: start: 20180703, end: 20180718
  2. ZEJULA [Suspect]
     Active Substance: NIRAPARIB
     Dosage: 100 MG, QD
     Route: 048
     Dates: start: 20180801, end: 201808

REACTIONS (16)
  - Tumour compression [Not Recovered/Not Resolved]
  - Dysgeusia [Not Recovered/Not Resolved]
  - Renal impairment [Unknown]
  - Vomiting [Not Recovered/Not Resolved]
  - Fatigue [Not Recovered/Not Resolved]
  - Renal failure [Not Recovered/Not Resolved]
  - Headache [Unknown]
  - Hyperhidrosis [Unknown]
  - Nausea [Not Recovered/Not Resolved]
  - Neoplasm progression [Not Recovered/Not Resolved]
  - Tumour marker increased [Not Recovered/Not Resolved]
  - Performance status decreased [Unknown]
  - Gastrooesophageal reflux disease [Unknown]
  - Platelet count decreased [Unknown]
  - Constipation [Not Recovered/Not Resolved]
  - Blood potassium increased [Not Recovered/Not Resolved]
